FAERS Safety Report 17063253 (Version 1)
Quarter: 2019Q4

REPORT INFORMATION
  Report Type: Spontaneous
  Country: GB (occurrence: GB)
  Receive Date: 20191122
  Receipt Date: 20191122
  Transmission Date: 20200122
  Serious: Yes (Hospitalization)
  Sender: FDA-Public Use
  Company Number: GB-TEVA-2019-GB-1139575

PATIENT
  Age: 54 Year
  Sex: Male

DRUGS (13)
  1. ACETYLSALICYLIC ACID [Suspect]
     Active Substance: ASPIRIN
  2. CODEINE [Concomitant]
     Active Substance: CODEINE
  3. GLUCOPHAGE XR [Concomitant]
     Active Substance: METFORMIN HYDROCHLORIDE
  4. SERTRALINE [Concomitant]
     Active Substance: SERTRALINE HYDROCHLORIDE
  5. CANAGLIFLOZIN [Concomitant]
     Active Substance: CANAGLIFLOZIN
  6. RAMIPRIL. [Concomitant]
     Active Substance: RAMIPRIL
  7. GLIMEPIRIDE. [Concomitant]
     Active Substance: GLIMEPIRIDE
  8. BISOPROLOL [Concomitant]
     Active Substance: BISOPROLOL
  9. PREDNISOLONE. [Suspect]
     Active Substance: PREDNISOLONE
     Indication: FACIAL PARALYSIS
     Dosage: 50 MILLIGRAM
     Route: 065
     Dates: start: 20180619, end: 20180629
  10. ATORVASTATIN [Concomitant]
     Active Substance: ATORVASTATIN
  11. GLUCOPHAGE XR [Concomitant]
     Active Substance: METFORMIN HYDROCHLORIDE
  12. PARACETAMOL [Concomitant]
     Active Substance: ACETAMINOPHEN
  13. ZOPICLONE [Concomitant]
     Active Substance: ZOPICLONE

REACTIONS (1)
  - Gastritis [Recovering/Resolving]

NARRATIVE: CASE EVENT DATE: 20180730
